FAERS Safety Report 5035845-0 (Version None)
Quarter: 2006Q2

REPORT INFORMATION
  Report Type: 
  Country: None (occurrence: None)
  Receive Date: 20060622
  Receipt Date: 20060615
  Transmission Date: 20061013
  Serious: Yes (Hospitalization)
  Sender: FDA-Public Use
  Company Number: 200614158BWH

PATIENT
  Age: 44 Year
  Sex: Male

DRUGS (4)
  1. NEXAVAR [Suspect]
     Indication: NEOPLASM MALIGNANT
     Dosage: 400 MG, BID, ORAL
     Route: 048
     Dates: start: 20060505
  2. TEMODAR [Concomitant]
  3. DILANTIN [Concomitant]
  4. DEXAMETHASONE [Concomitant]

REACTIONS (2)
  - BRAIN NEOPLASM [None]
  - THROMBOPHLEBITIS [None]
